FAERS Safety Report 4627663-X (Version None)
Quarter: 2005Q2

REPORT INFORMATION
  Report Type: 
  Country: None (occurrence: None)
  Receive Date: 20050406
  Receipt Date: 20050324
  Transmission Date: 20051028
  Serious: Yes (Hospitalization)
  Sender: FDA-Public Use
  Company Number: FR-JNJFOC-20050206389

PATIENT
  Age: 29 Year
  Sex: Female
  Weight: 62 kg

DRUGS (10)
  1. REMICADE [Suspect]
     Dosage: 2ND INFUSION
     Route: 042
  2. REMICADE [Suspect]
     Indication: ANKYLOSING SPONDYLITIS
     Dosage: 1ST INFUSION
     Route: 042
  3. PANTOPRAZOLE SODIUM [Concomitant]
     Route: 049
  4. BUTAZOLIDINE [Concomitant]
     Route: 049
  5. LAMALINE [Concomitant]
     Route: 049
  6. LAMALINE [Concomitant]
     Route: 049
  7. LAMALINE [Concomitant]
     Route: 049
  8. LAMALINE [Concomitant]
     Dosage: 8 TABLETS
     Route: 049
  9. ACUPAN [Concomitant]
  10. RIVOTRIL [Concomitant]
     Dosage: TEN DROPS
     Route: 049

REACTIONS (1)
  - PSORIASIS [None]
